APPROVED DRUG PRODUCT: FOSAMAX PLUS D
Active Ingredient: ALENDRONATE SODIUM; CHOLECALCIFEROL
Strength: EQ 70MG BASE;5,600 IU
Dosage Form/Route: TABLET;ORAL
Application: N021762 | Product #002
Applicant: ORGANON LLC
Approved: Apr 26, 2007 | RLD: Yes | RS: Yes | Type: RX